FAERS Safety Report 16589653 (Version 1)
Quarter: 2019Q3

REPORT INFORMATION
  Report Type: Other
  Country: US (occurrence: US)
  Receive Date: 20190718
  Receipt Date: 20190718
  Transmission Date: 20191004
  Serious: No
  Sender: FDA-Public Use
  Company Number: US-SWEDISH ORPHAN BIOVITRUM-2019US0559

PATIENT
  Sex: Female

DRUGS (11)
  1. FLONASE [Concomitant]
     Active Substance: FLUTICASONE PROPIONATE
  2. ALLEGRA [Concomitant]
     Active Substance: FEXOFENADINE HYDROCHLORIDE
  3. METHOTREXATE. [Concomitant]
     Active Substance: METHOTREXATE
  4. FERROUS SULFATE. [Concomitant]
     Active Substance: FERROUS SULFATE
  5. KINERET [Suspect]
     Active Substance: ANAKINRA
     Route: 058
     Dates: start: 20190310
  6. LEVOTHYROXINE. [Concomitant]
     Active Substance: LEVOTHYROXINE
  7. VITAMIN D [Concomitant]
     Active Substance: VITAMIN D NOS
  8. DAYSEE [Concomitant]
     Active Substance: ETHINYL ESTRADIOL\LEVONORGESTREL
  9. KINERET [Suspect]
     Active Substance: ANAKINRA
     Route: 058
     Dates: start: 20190408
  10. FOLIC ACID. [Concomitant]
     Active Substance: FOLIC ACID
  11. METFORMIN [Concomitant]
     Active Substance: METFORMIN HYDROCHLORIDE

REACTIONS (3)
  - Nasopharyngitis [Not Recovered/Not Resolved]
  - Malaise [Unknown]
  - Injection site urticaria [Not Recovered/Not Resolved]
